FAERS Safety Report 9504010 (Version 1)
Quarter: 2013Q3

REPORT INFORMATION
  Report Type: Spontaneous
  Country: US (occurrence: None)
  Receive Date: 20130905
  Receipt Date: 20130905
  Transmission Date: 20140515
  Serious: Yes (Disabling, Other)
  Sender: FDA-Public Use
  Company Number: None

PATIENT
  Age: 64 Year
  Sex: Female
  Weight: 63.5 kg

DRUGS (24)
  1. PROLIA [Suspect]
     Indication: OSTEOPOROSIS
     Dosage: EVERY 6 MONTHS
     Dates: start: 201210, end: 201304
  2. BABY ASPIRIN [Concomitant]
  3. LORATADINE [Concomitant]
  4. HYZAAR [Concomitant]
  5. GABANENTIN [Concomitant]
  6. POTASSIUM [Concomitant]
  7. FLUOXETINE [Concomitant]
  8. MECLIZINE HCL [Concomitant]
  9. FUROSEMIDE [Concomitant]
  10. CLONAZEPAM [Concomitant]
  11. ESTRADIOL HORMONE PATCH [Concomitant]
  12. PROMETHAZINE [Concomitant]
  13. FLUTICASONE PROPIONATE [Concomitant]
  14. ROPINIROLE HCL [Concomitant]
  15. CYCLOBENZAPRINE HCL [Concomitant]
  16. FENOFIBRATE [Concomitant]
  17. SIMVASTATIN [Concomitant]
  18. FIORINAL [Concomitant]
  19. NEXIUM [Concomitant]
  20. ERGOCALCIFEROL [Concomitant]
  21. LEVOTHYROXINE [Concomitant]
  22. DETROL [Concomitant]
  23. METHOCARBAMOL [Concomitant]
  24. FOLIC ACID [Concomitant]

REACTIONS (9)
  - Tooth disorder [None]
  - Impaired healing [None]
  - Exposed bone in jaw [None]
  - Osteomyelitis [None]
  - Ear pain [None]
  - Erythema [None]
  - Ear swelling [None]
  - Economic problem [None]
  - Gingival pain [None]
